FAERS Safety Report 9704953 (Version 2)
Quarter: 2013Q4

REPORT INFORMATION
  Report Type: Spontaneous
  Country: BR (occurrence: BR)
  Receive Date: 20131122
  Receipt Date: 20131122
  Transmission Date: 20140711
  Serious: Yes (Other)
  Sender: FDA-Public Use
  Company Number: BR-AMGEN-BRASP2013016352

PATIENT
  Age: 32 Year
  Sex: Female
  Weight: 40 kg

DRUGS (3)
  1. ENBREL [Suspect]
     Indication: ANKYLOSING SPONDYLITIS
     Dosage: 50 MG, ONCE WEEKLY
     Route: 058
     Dates: start: 20121101, end: 2013
  2. NORTRIPTYLINE HYDROCHLORIDE [Concomitant]
     Dosage: 25 MG, ONCE DAILY
     Route: 048
  3. PREDNISONE [Concomitant]
     Dosage: STRENGTH 5 MG, UNK

REACTIONS (4)
  - Cartilage injury [Unknown]
  - Pruritus [Unknown]
  - Rash [Unknown]
  - Hypersensitivity [Not Recovered/Not Resolved]
